FAERS Safety Report 16535603 (Version 6)
Quarter: 2022Q2

REPORT INFORMATION
  Report Type: Spontaneous
  Country: US (occurrence: US)
  Receive Date: 20190705
  Receipt Date: 20220517
  Transmission Date: 20220721
  Serious: Yes (Death, Other)
  Sender: FDA-Public Use
  Company Number: US-PFIZER INC-2019197190

PATIENT
  Age: 67 Year
  Sex: Female
  Weight: 99.773 kg

DRUGS (29)
  1. XELJANZ [Suspect]
     Active Substance: TOFACITINIB CITRATE
     Indication: Rheumatoid arthritis
     Dosage: 10 MG, DAILY
     Dates: start: 20181011
  2. XELJANZ [Suspect]
     Active Substance: TOFACITINIB CITRATE
     Dosage: 5 MG, DAILY
  3. XELJANZ [Suspect]
     Active Substance: TOFACITINIB CITRATE
     Dosage: 5 MG, 2X/DAY
     Dates: start: 20200923
  4. ALBUTEROL [Concomitant]
     Active Substance: ALBUTEROL
     Indication: Asthma
     Dosage: 90 UG, AS NEEDED (90 MCG PER ACTUATION AS NEEDED)
     Route: 055
  5. BENADRYL [Concomitant]
     Active Substance: DIPHENHYDRAMINE HYDROCHLORIDE
     Dosage: 50 MG, AS NEEDED
  6. FLECAINIDE [Concomitant]
     Active Substance: FLECAINIDE
     Indication: Atrial fibrillation
     Dosage: 100 MG, TWICE A DAY (MORNING AND BEDTIME)
  7. FLECAINIDE [Concomitant]
     Active Substance: FLECAINIDE
     Dosage: 50 MG, 2X/DAY (50MG TABLET, ONE TABLET TWICE A DAY)
  8. FLAVOXATE [Concomitant]
     Active Substance: FLAVOXATE
     Dosage: 100 MG, AS NEEDED THREE TIMES A DAY
  9. LEVOTHYROXINE [Concomitant]
     Active Substance: LEVOTHYROXINE
     Dosage: 75 UG, ONCE A DAY (IN THE MORNING)
  10. LISINOPRIL [Concomitant]
     Active Substance: LISINOPRIL
     Dosage: 5 MG, ONCE A DAY (IN THE MORNING)
  11. METOPROLOL TARTRATE [Concomitant]
     Active Substance: METOPROLOL TARTRATE
     Indication: Hypertension
     Dosage: 75 MG, ONCE A DAY (ONE AND A HALF OF 50 MG TABLET AT BEDTIME)
  12. MUPIROCIN [Concomitant]
     Active Substance: MUPIROCIN
     Dosage: UNK, TWICE A DAY (MORNING AND BEDTIME)
  13. NAPROXEN [Concomitant]
     Active Substance: NAPROXEN
     Dosage: 220 MG, TWICE A DAY (MORNING AND BEDTIME)
  14. PREDNISONE [Concomitant]
     Active Substance: PREDNISONE
     Indication: Rheumatoid arthritis
     Dosage: UNK, 1X/DAY (ONE TO FIVE 1 MG TABLETS IN THE MORNING)
  15. PREDNISONE [Concomitant]
     Active Substance: PREDNISONE
     Dosage: 5 MG, DAILY (5MG TABLET DAILY)
  16. PREMARIN [Concomitant]
     Active Substance: ESTROGENS, CONJUGATED
     Dosage: 0.9 MG, ONCE A DAY (IN THE MORNING)
  17. TYLENOL [Concomitant]
     Active Substance: ACETAMINOPHEN
     Indication: Rheumatoid arthritis
     Dosage: 1000 MG, TWICE A DAY (TWO 500 MG TABLETS IN THE MORNING AND AT BEDTIME)
  18. TYLENOL [Concomitant]
     Active Substance: ACETAMINOPHEN
     Dosage: 500 MG, 3X/DAY (500MG TABLETS THREE TIMES A DAY)
  19. VOLTAREN [Concomitant]
     Active Substance: DICLOFENAC SODIUM
     Dosage: UNK, AS NEEDED (FOUR TIMES A DAY AS NEEDED)
  20. VITAMIN B12 [Concomitant]
     Active Substance: CYANOCOBALAMIN
     Dosage: 1000 UG, ONCE A DAY (IN THE MORNING)
  21. VITAMIN D3 [Concomitant]
     Active Substance: CHOLECALCIFEROL
     Dosage: 1000 IU, ONCE A DAY (IN THE MORNING)
  22. ZYPREXA [Concomitant]
     Active Substance: OLANZAPINE
     Indication: Bipolar disorder
     Dosage: 7.5 MG, ONCE A DAY (AT BEDTIME)
  23. ZYPREXA [Concomitant]
     Active Substance: OLANZAPINE
     Dosage: 5 MG, 1X/DAY (5MG TABLET ONE TABLET DAILY)
  24. ATACAND [Concomitant]
     Active Substance: CANDESARTAN CILEXETIL
     Indication: Hypertension
     Dosage: 8 MG, 1X/DAY (8MG TABLET ONCE A DAY)
  25. ESTRADIOL [Concomitant]
     Active Substance: ESTRADIOL
     Dosage: 1 MG, 2X/DAY (1MG TABLET TWICE A DAY)
  26. EUTHYROX [Concomitant]
     Active Substance: LEVOTHYROXINE SODIUM
     Indication: Hypothyroidism
     Dosage: 100 UG, 1X/DAY (100MCG ONE TABLET DAILY)
  27. NAPROSYN [Concomitant]
     Active Substance: NAPROXEN
     Indication: Inflammation
     Dosage: 220 MG, 2X/DAY (220MG ONE TABLET TWICE A DAY)
  28. NAPROSYN [Concomitant]
     Active Substance: NAPROXEN
     Indication: Rheumatoid arthritis
  29. TOPAMAX [Concomitant]
     Active Substance: TOPIRAMATE
     Indication: Food craving
     Dosage: 50 MG, 1X/DAY (50MG TABLET ONE TABLET DAILY)

REACTIONS (2)
  - Death [Fatal]
  - Fungal foot infection [Recovered/Resolved]

NARRATIVE: CASE EVENT DATE: 20190115
